FAERS Safety Report 5826622-9 (Version None)
Quarter: 2008Q3

REPORT INFORMATION
  Report Type: 
  Country: None (occurrence: None)
  Receive Date: 20080728
  Receipt Date: 20080728
  Transmission Date: 20090109
  Serious: No
  Sender: FDA-Public Use
  Company Number: None

PATIENT

DRUGS (1)
  1. TRIEST 2.5MG APPLIED PHARMACY [Suspect]
     Indication: MENOPAUSE
     Dosage: 1 CAPSULE DAILY PO
     Route: 048

REACTIONS (1)
  - DRUG DISPENSING ERROR [None]
